FAERS Safety Report 6978401-7 (Version None)
Quarter: 2010Q3

REPORT INFORMATION
  Report Type: 
  Country: None (occurrence: None)
  Receive Date: 20100913
  Receipt Date: 20100830
  Transmission Date: 20110219
  Serious: Yes (Other)
  Sender: FDA-Public Use
  Company Number: BR-BRISTOL-MYERS SQUIBB COMPANY-15280548

PATIENT
  Age: 59 Year
  Sex: Female

DRUGS (4)
  1. GLIFAGE XR [Suspect]
     Indication: DIABETES MELLITUS
     Dosage: GLIFAGE XR TABLETS; ONCE DAILY AT NIGHT
     Route: 048
     Dates: start: 20100819, end: 20100828
  2. RIVOTRIL [Concomitant]
  3. CHLORPHENTERMINE HCL [Concomitant]
  4. CALCIUM + VITAMIN D [Concomitant]

REACTIONS (4)
  - APATHY [None]
  - DEPRESSION [None]
  - HEADACHE [None]
  - TINNITUS [None]
